FAERS Safety Report 16504363 (Version 1)
Quarter: 2019Q3

REPORT INFORMATION
  Report Type: Spontaneous
  Country: US (occurrence: US)
  Receive Date: 20190701
  Receipt Date: 20190701
  Transmission Date: 20191004
  Serious: No
  Sender: FDA-Public Use
  Company Number: US-PFIZER INC-2019268974

PATIENT
  Age: 51 Year
  Sex: Female
  Weight: 90 kg

DRUGS (4)
  1. LYRICA [Suspect]
     Active Substance: PREGABALIN
     Indication: FIBROMYALGIA
     Dosage: 50 MG, 3X/DAY,(MORNING MID DAY AND BEFORE BED, 150MG TOTAL THROUGHOUT THE DAY )
     Dates: start: 2014
  2. AMITRIPTYLINE [Concomitant]
     Active Substance: AMITRIPTYLINE
     Indication: PAIN
     Dosage: UNK, 1X/DAY,(50MG ONE OR TWO TABLETS AT BEDTIME  )
  3. PAROXETINE. [Concomitant]
     Active Substance: PAROXETINE
     Dosage: 40 MG, UNK (IN THE MORNING)
  4. PAROXETINE. [Concomitant]
     Active Substance: PAROXETINE
     Indication: DEPRESSION
     Dosage: 20 MG, 1X/DAY(IN THE MORNING)

REACTIONS (3)
  - Pain [Unknown]
  - Fibromyalgia [Unknown]
  - Intentional product misuse [Unknown]

NARRATIVE: CASE EVENT DATE: 201812
